FAERS Safety Report 5464677-4 (Version None)
Quarter: 2007Q3

REPORT INFORMATION
  Report Type: 
  Country: None (occurrence: None)
  Receive Date: 20070921
  Receipt Date: 20070914
  Transmission Date: 20080115
  Serious: Yes (Death, Hospitalization)
  Sender: FDA-Public Use
  Company Number: US-PFIZER INC-2003168868US

PATIENT
  Sex: Male
  Weight: 68 kg

DRUGS (21)
  1. SOLU-MEDROL [Suspect]
     Indication: ASTHMA
     Route: 042
     Dates: start: 19970401, end: 19970412
  2. SOLU-MEDROL [Suspect]
     Dosage: TEXT:125 MG AT 1200
     Route: 042
  3. SOLU-MEDROL [Suspect]
     Dosage: TEXT:125 MG AT 1800
     Route: 042
  4. SOLU-MEDROL [Suspect]
     Dosage: TEXT:125 Q4 HRS=750MG/DAY
     Route: 042
     Dates: start: 19970403, end: 19970403
  5. SOLU-MEDROL [Suspect]
     Dosage: DAILY DOSE:500MG
     Dates: start: 19970404, end: 19970404
  6. SOLU-MEDROL [Suspect]
     Dosage: DAILY DOSE:125MG-FREQ:FREQUENCY: BID
     Route: 042
     Dates: start: 19970405, end: 19970405
  7. SOLU-MEDROL [Suspect]
     Dosage: DAILY DOSE:60MG-FREQ:FREQUENCY: BID
     Route: 042
     Dates: start: 19970405, end: 19970405
  8. SOLU-MEDROL [Suspect]
     Dosage: DAILY DOSE:60MG-FREQ:FREQUENCY: QID
     Route: 042
     Dates: start: 19970406, end: 19970406
  9. SOLU-MEDROL [Suspect]
     Dosage: DAILY DOSE:60MG-FREQ:FREQUENCY: TID
     Route: 042
     Dates: start: 19970407, end: 19970407
  10. SOLU-MEDROL [Suspect]
     Dosage: DAILY DOSE:60MG-FREQ:FREQUENCY: QID
     Route: 042
     Dates: start: 19970408, end: 19970408
  11. SOLU-MEDROL [Suspect]
     Dosage: DAILY DOSE:60MG-FREQ:FREQUENCY: SINGLE
     Route: 042
     Dates: start: 19970409, end: 19970409
  12. SOLU-MEDROL [Suspect]
     Dosage: DAILY DOSE:40MG-FREQ:FREQUENCY: TID
     Route: 042
     Dates: start: 19970409, end: 19970409
  13. SOLU-MEDROL [Suspect]
     Dosage: DAILY DOSE:40MG-FREQ:FREQUENCY: SINGLE
     Route: 042
     Dates: start: 19970410, end: 19970410
  14. SOLU-MEDROL [Suspect]
     Dosage: DAILY DOSE:50MG-FREQ:FREQUENCY: SINGLE
     Route: 042
     Dates: start: 19970410, end: 19970410
  15. SOLU-MEDROL [Suspect]
     Dosage: DAILY DOSE:40MG-FREQ:FREQUENCY: TID
     Route: 042
     Dates: start: 19970410, end: 19970410
  16. SOLU-MEDROL [Suspect]
     Dosage: DAILY DOSE:40MG-FREQ:FREQUENCY: BID
     Route: 042
     Dates: start: 19970411, end: 19970411
  17. SOLU-MEDROL [Suspect]
     Dosage: DAILY DOSE:40MG-FREQ:FREQUENCY: SINGLE
     Route: 042
     Dates: start: 19970412, end: 19970412
  18. PROVENTIL GENTLEHALER [Suspect]
     Indication: ASTHMA
  19. ALBUTEROL [Suspect]
     Indication: ASTHMA
  20. TERBUTALINE SULFATE [Suspect]
  21. LASIX [Concomitant]

REACTIONS (6)
  - ACCIDENTAL OVERDOSE [None]
  - GASTRIC HAEMORRHAGE [None]
  - GASTRIC PERFORATION [None]
  - INTESTINAL GANGRENE [None]
  - MULTI-ORGAN FAILURE [None]
  - SEPTIC SHOCK [None]
